FAERS Safety Report 7293029-X (Version None)
Quarter: 2011Q1

REPORT INFORMATION
  Report Type: 
  Country: None (occurrence: None)
  Receive Date: 20110208
  Receipt Date: 20090619
  Transmission Date: 20110831
  Serious: No
  Sender: FDA-Public Use
  Company Number: 2009-00073

PATIENT
  Age: 83 Year
  Sex: Female
  Weight: 68.0396 kg

DRUGS (5)
  1. ZICAM COLD REMEDY NASAL GEL [Suspect]
     Dosage: QID
  2. PAROXETINE HCL [Concomitant]
  3. LOTREL [Concomitant]
  4. CRESTOR [Concomitant]
  5. LEVOTHYROXINE [Concomitant]

REACTIONS (1)
  - ANOSMIA [None]
